FAERS Safety Report 16494675 (Version 4)
Quarter: 2020Q1

REPORT INFORMATION
  Report Type: Spontaneous
  Country: US (occurrence: US)
  Receive Date: 20190628
  Receipt Date: 20200319
  Transmission Date: 20200409
  Serious: Yes (Other)
  Sender: FDA-Public Use
  Company Number: US-SA-2019SA175453

PATIENT
  Age: 61 Year
  Sex: Female
  Weight: 52.61 kg

DRUGS (16)
  1. DUPIXENT [Suspect]
     Active Substance: DUPILUMAB
     Indication: ASTHMA
     Dosage: 300 MG, QOW
     Route: 058
     Dates: start: 20190527
  2. METAMUCIL [Concomitant]
     Active Substance: PLANTAGO SEED
  3. BENZONATATE. [Concomitant]
     Active Substance: BENZONATATE
  4. OMEPRAZOLE. [Concomitant]
     Active Substance: OMEPRAZOLE
  5. IPRATROPIUM BROMIDE/ALBUTEROL SULFATE [Concomitant]
     Active Substance: ALBUTEROL SULFATE\IPRATROPIUM BROMIDE
  6. AMITRIPTYLINE HCL [Concomitant]
     Active Substance: AMITRIPTYLINE
  7. BACLOFEN. [Concomitant]
     Active Substance: BACLOFEN
  8. TAMIFLU [Concomitant]
     Active Substance: OSELTAMIVIR PHOSPHATE
     Indication: INFLUENZA
  9. SYMBICORT [Concomitant]
     Active Substance: BUDESONIDE\FORMOTEROL FUMARATE DIHYDRATE
  10. SPIRIVA [Concomitant]
     Active Substance: TIOTROPIUM BROMIDE MONOHYDRATE
  11. DOXYCYCLINE HYCLATE. [Concomitant]
     Active Substance: DOXYCYCLINE HYCLATE
  12. MONTELUKAST SODIUM. [Concomitant]
     Active Substance: MONTELUKAST SODIUM
  13. ALENDRONATE SODIUM. [Concomitant]
     Active Substance: ALENDRONATE SODIUM
  14. CALCIUM + VITAMIN D [CALCIUM;COLECALCIFEROL] [Concomitant]
     Active Substance: CALCIUM\CHOLECALCIFEROL
  15. OSTEO BI-FLEX [CHONDROITIN SULFATE;GLUCOSAMINE HYDROCHLORIDE] [Concomitant]
  16. QVAR REDIHALER [Concomitant]
     Active Substance: BECLOMETHASONE DIPROPIONATE

REACTIONS (10)
  - Wheezing [Unknown]
  - Bronchospasm [Unknown]
  - Injection site bruising [Unknown]
  - Product dose omission [Unknown]
  - Malaise [Unknown]
  - Asthma [Recovering/Resolving]
  - Rash [Recovered/Resolved]
  - Fungal oesophagitis [Unknown]
  - Dyspnoea [Unknown]
  - Sinus disorder [Unknown]

NARRATIVE: CASE EVENT DATE: 2019
